FAERS Safety Report 26117922 (Version 2)
Quarter: 2025Q4

REPORT INFORMATION
  Report Type: Spontaneous
  Country: EU (occurrence: EU)
  Receive Date: 20251203
  Receipt Date: 20251231
  Transmission Date: 20260118
  Serious: Yes (Hospitalization, Other)
  Sender: Corza Medical
  Company Number: EU-AFSSAPS-TO2025001861

PATIENT

DRUGS (3)
  1. TACHOSIL [Suspect]
     Active Substance: FIBRINOGEN HUMAN\HUMAN THROMBIN
     Indication: Haemostasis
     Dosage: 1 DF
     Route: 037
     Dates: start: 20250911, end: 20251023
  2. TACHOSIL [Suspect]
     Active Substance: FIBRINOGEN HUMAN\HUMAN THROMBIN
     Indication: Ependymoma
     Dosage: 1 DF
     Route: 037
     Dates: start: 20250828, end: 20250911
  3. VANCOMYCIN [Suspect]
     Active Substance: VANCOMYCIN
     Indication: Meningitis
     Dosage: 60 MG/KG
     Route: 042
     Dates: start: 20250915, end: 20250916

REACTIONS (2)
  - Meningitis bacterial [Recovering/Resolving]
  - Urticaria [Recovered/Resolved]

NARRATIVE: CASE EVENT DATE: 20250915
